FAERS Safety Report 5315392-9 (Version None)
Quarter: 2007Q2

REPORT INFORMATION
  Report Type: 
  Country: None (occurrence: None)
  Receive Date: 20070503
  Receipt Date: 20070424
  Transmission Date: 20071010
  Serious: Yes (Hospitalization)
  Sender: FDA-Public Use
  Company Number: PHBS2007JP05650

PATIENT
  Age: 13 Year
  Sex: Male

DRUGS (2)
  1. NEORAL [Suspect]
     Indication: NEPHROTIC SYNDROME
     Dosage: 125 MG/D
     Route: 048
  2. NEORAL [Suspect]
     Dosage: UNK, UNK
     Route: 048
     Dates: end: 20030101

REACTIONS (3)
  - HYPERTENSIVE ENCEPHALOPATHY [None]
  - NEPHROPATHY [None]
  - RENAL TUBULAR ATROPHY [None]
